FAERS Safety Report 6157465-7 (Version None)
Quarter: 2009Q2

REPORT INFORMATION
  Report Type: 
  Country: None (occurrence: None)
  Receive Date: 20090416
  Receipt Date: 20090406
  Transmission Date: 20091009
  Serious: Yes (Hospitalization, Other)
  Sender: FDA-Public Use
  Company Number: PHHY2009DE13938

PATIENT
  Sex: Female

DRUGS (5)
  1. DIOVAN [Suspect]
     Dosage: 80 MG/DAY
     Route: 048
  2. DIOVAN [Suspect]
     Dosage: 160 MG
     Route: 048
  3. CIPROHEXAL [Suspect]
     Indication: PHARYNGITIS
     Dosage: 1 DF, BID
     Dates: start: 20040426, end: 20040503
  4. ROXIHEXAL [Suspect]
     Indication: PHARYNGITIS
     Dosage: 1 DF, QD
     Dates: start: 20040414, end: 20040418
  5. TEBONIN [Concomitant]

REACTIONS (29)
  - ANAEMIA HAEMOLYTIC AUTOIMMUNE [None]
  - BLOOD IMMUNOGLOBULIN A INCREASED [None]
  - BLOOD IMMUNOGLOBULIN G INCREASED [None]
  - BLOOD IMMUNOGLOBULIN M INCREASED [None]
  - BLOOD LACTATE DEHYDROGENASE INCREASED [None]
  - CARDIOVASCULAR INSUFFICIENCY [None]
  - COOMBS DIRECT TEST POSITIVE [None]
  - DIZZINESS [None]
  - ENTERITIS [None]
  - EPISTAXIS [None]
  - ERYTHROPOIESIS ABNORMAL [None]
  - FATIGUE [None]
  - HAEMOGLOBIN DECREASED [None]
  - HAEMOLYSIS [None]
  - HAEMOLYTIC ANAEMIA [None]
  - HEADACHE [None]
  - HEART RATE INCREASED [None]
  - HYPERPLASIA [None]
  - HYPERTENSION [None]
  - LYMPHADENECTOMY [None]
  - LYMPHADENOPATHY [None]
  - LYMPHADENOPATHY MEDIASTINAL [None]
  - OROPHARYNGEAL PAIN [None]
  - PAIN [None]
  - RASH VESICULAR [None]
  - RETICULOCYTE PERCENTAGE INCREASED [None]
  - RETROPERITONEAL LYMPHADENOPATHY [None]
  - SPLENOMEGALY [None]
  - TYPE III IMMUNE COMPLEX MEDIATED REACTION [None]
